FAERS Safety Report 17536531 (Version 1)
Quarter: 2020Q1

REPORT INFORMATION
  Report Type: Spontaneous
  Country: US (occurrence: US)
  Receive Date: 20200303
  Receipt Date: 20200303
  Transmission Date: 20200409
  Serious: No
  Sender: FDA-Public Use
  Company Number: None

PATIENT
  Age: 78 Year
  Sex: Male
  Weight: 111.13 kg

DRUGS (8)
  1. ATENOL [Concomitant]
     Active Substance: ATENOLOL
  2. TAFINLAR [Suspect]
     Active Substance: DABRAFENIB MESYLATE
     Indication: MALIGNANT MELANOMA
     Dosage: ?          QUANTITY:1 DF DOSAGE FORM;?
  3. ALLA PURANOL [Concomitant]
  4. VITAMIN [Concomitant]
     Active Substance: VITAMINS
  5. ALEVE [Concomitant]
     Active Substance: NAPROXEN SODIUM
  6. METFORMIN [Concomitant]
     Active Substance: METFORMIN HYDROCHLORIDE
  7. LOSARTAN. [Concomitant]
     Active Substance: LOSARTAN
  8. MEKINIST [Suspect]
     Active Substance: TRAMETINIB DIMETHYL SULFOXIDE
     Indication: MALIGNANT MELANOMA
     Dosage: ?          QUANTITY:1 DF DOSAGE FORM;?

REACTIONS (4)
  - Immunodeficiency [None]
  - White blood cell count decreased [None]
  - Platelet count decreased [None]
  - Malignant hydatidiform mole [None]
